FAERS Safety Report 24350684 (Version 1)
Quarter: 2024Q3

REPORT INFORMATION
  Report Type: Spontaneous
  Country: CN (occurrence: CN)
  Receive Date: 20240923
  Receipt Date: 20240923
  Transmission Date: 20241016
  Serious: No
  Sender: ROCHE
  Company Number: CN-ROCHE-3523718

PATIENT
  Age: 45 Year
  Sex: Female

DRUGS (6)
  1. HERCEPTIN [Suspect]
     Active Substance: TRASTUZUMAB
     Indication: Breast cancer
     Dosage: 6 CYCLES
     Route: 065
     Dates: start: 20220524
  2. PERJETA [Suspect]
     Active Substance: PERTUZUMAB
     Indication: Breast cancer
     Dosage: 6 CYCLES
     Route: 065
     Dates: start: 20220524
  3. KADCYLA [Suspect]
     Active Substance: ADO-TRASTUZUMAB EMTANSINE
     Indication: Breast cancer
     Dosage: 14 CYCLES
     Route: 065
     Dates: start: 20221205
  4. DOCETAXEL [Concomitant]
     Active Substance: DOCETAXEL\DOCETAXEL ANHYDROUS
     Indication: Breast cancer
     Dosage: 6 CYCLES
     Dates: start: 20210524, end: 20220911
  5. CARBOPLATIN [Concomitant]
     Active Substance: CARBOPLATIN
     Indication: Breast cancer
     Dates: start: 20210524, end: 20220911
  6. ELTROMBOPAG [Concomitant]
     Active Substance: ELTROMBOPAG

REACTIONS (1)
  - Platelet count decreased [Recovering/Resolving]
